FAERS Safety Report 7109417-8 (Version None)
Quarter: 2010Q4

REPORT INFORMATION
  Report Type: 
  Country: None (occurrence: None)
  Receive Date: 20101118
  Receipt Date: 20101109
  Transmission Date: 20110411
  Serious: No
  Sender: FDA-Public Use
  Company Number: US-BIOGENIDEC-2010BI034619

PATIENT
  Sex: Female

DRUGS (2)
  1. TYSABRI [Suspect]
     Indication: MULTIPLE SCLEROSIS
     Route: 042
     Dates: start: 20080320, end: 20080613
  2. TYSABRI [Suspect]
     Route: 042
     Dates: start: 20090107

REACTIONS (21)
  - ANGER [None]
  - ANXIETY [None]
  - ARTHRITIS [None]
  - CHILLS [None]
  - DEPRESSION [None]
  - DIPLOPIA [None]
  - FOOD ALLERGY [None]
  - HERPES SIMPLEX [None]
  - HYPERSENSITIVITY [None]
  - HYPOAESTHESIA [None]
  - INCONTINENCE [None]
  - INJECTION SITE REACTION [None]
  - INSOMNIA [None]
  - IRRITABLE BOWEL SYNDROME [None]
  - LACTOSE INTOLERANCE [None]
  - LIGAMENT RUPTURE [None]
  - MENISCUS LESION [None]
  - MUSCULOSKELETAL PAIN [None]
  - PYREXIA [None]
  - STRESS [None]
  - WEIGHT DECREASED [None]
